FAERS Safety Report 4909333-3 (Version None)
Quarter: 2006Q1

REPORT INFORMATION
  Report Type: 
  Country: None (occurrence: None)
  Receive Date: 20060213
  Receipt Date: 20060207
  Transmission Date: 20060701
  Serious: Yes (Death)
  Sender: FDA-Public Use
  Company Number: 06P-028-0321964-00

PATIENT
  Age: 39 Year
  Sex: Male

DRUGS (9)
  1. LAMIVUDINE + ZIDOVUDINE [Suspect]
     Indication: HIV INFECTION
     Dosage: 2TAB PER DAY
     Route: 048
     Dates: start: 20040325, end: 20060108
  2. EFAVIRENZ [Suspect]
     Indication: HIV INFECTION
     Dosage: 600MG AT NIGHT
     Route: 048
     Dates: start: 20040325, end: 20060108
  3. DIOVAN HCT [Concomitant]
     Indication: HYPERTENSION
     Dates: start: 20040201, end: 20040408
  4. INFLUENZA VACCINE [Concomitant]
     Dosage: .5ML SINGLE DOSE
     Route: 030
     Dates: start: 20041130, end: 20041130
  5. INFLUENZA VACCINE [Concomitant]
     Route: 030
     Dates: start: 20051129, end: 20051129
  6. TESTOSTERONE CYPIONATE [Concomitant]
     Indication: FATIGUE
     Dates: start: 20050222
  7. HEPATITIS B VACCINE [Concomitant]
     Dosage: 1ML SINGLE DOSE
     Dates: start: 20050519, end: 20050519
  8. MOCLOBEMIDE [Concomitant]
     Indication: TUBERCULOSIS
     Dosage: .5ML SINGLE DOSE
     Dates: start: 20050525, end: 20050525
  9. HEPATITIS A VACCINE [Concomitant]
     Dosage: 1ML SINGLE DOSE
     Route: 030
     Dates: start: 20050614, end: 20050614

REACTIONS (8)
  - CHEST DISCOMFORT [None]
  - CHEST PAIN [None]
  - COLD SWEAT [None]
  - HYPOAESTHESIA [None]
  - PAIN [None]
  - PAIN IN EXTREMITY [None]
  - SUDDEN DEATH [None]
  - VISION BLURRED [None]
